FAERS Safety Report 6030524-5 (Version None)
Quarter: 2009Q1

REPORT INFORMATION
  Report Type: 
  Country: None (occurrence: None)
  Receive Date: 20090107
  Receipt Date: 20081230
  Transmission Date: 20090719
  Serious: Yes (Death, Hospitalization)
  Sender: FDA-Public Use
  Company Number: US-GILEAD-2008-0019669

PATIENT
  Sex: Female

DRUGS (7)
  1. LETAIRIS [Suspect]
     Indication: PULMONARY ARTERIAL HYPERTENSION
     Route: 048
  2. SILDENAFIL CITRATE [Concomitant]
  3. LISINOPRIL [Concomitant]
  4. FUROSEMIDE [Concomitant]
  5. SPIRONOLACTONE [Concomitant]
  6. FLUTICASONE-SALMETEROL [Concomitant]
  7. HYDROXYZINE [Concomitant]

REACTIONS (3)
  - ATRIAL FIBRILLATION [None]
  - OEDEMA PERIPHERAL [None]
  - RENAL FAILURE ACUTE [None]
